FAERS Safety Report 20815156 (Version 1)
Quarter: 2022Q2

REPORT INFORMATION
  Report Type: Spontaneous
  Country: US (occurrence: US)
  Receive Date: 20220511
  Receipt Date: 20220511
  Transmission Date: 20220720
  Serious: No
  Sender: FDA-Public Use
  Company Number: US-PFIZER INC-202200114028

PATIENT
  Age: 71 Year
  Sex: Male
  Weight: 70.31 kg

DRUGS (2)
  1. LIOTHYRONINE SODIUM [Suspect]
     Active Substance: LIOTHYRONINE SODIUM
     Indication: Basedow^s disease
     Dosage: 5 UG (2 TABLETS IN THE MORNING, ONE TABLET AT LUNCH AND 2 TABLETS IN THE EVENING)
     Dates: start: 202201
  2. UNITHROID [Concomitant]
     Active Substance: LEVOTHYROXINE SODIUM
     Indication: Basedow^s disease
     Dosage: 25 UG (25 MCG TABLETS, 2 TABLETS IN THE MORNING AND 1 TABLET AT NIGHT)

REACTIONS (3)
  - Drug ineffective [Unknown]
  - Muscle fatigue [Unknown]
  - Somnolence [Unknown]
